FAERS Safety Report 4521977-X (Version None)
Quarter: 2004Q4

REPORT INFORMATION
  Report Type: 
  Country: None (occurrence: None)
  Receive Date: 20041207
  Receipt Date: 20041207
  Transmission Date: 20050328
  Serious: No
  Sender: FDA-Public Use
  Company Number: None

PATIENT
  Age: 2 Month
  Sex: Male
  Weight: 4.536 kg

DRUGS (2)
  1. PREVACID [Suspect]
     Indication: GASTROOESOPHAGEAL REFLUX DISEASE
     Dosage: 1/2 PKT  DAILY  ORAL
     Route: 048
     Dates: start: 20031110, end: 20040207
  2. PREVACID [Suspect]
     Indication: HYPERCHLORHYDRIA
     Dosage: 1/2 PKT  DAILY  ORAL
     Route: 048
     Dates: start: 20031110, end: 20040207

REACTIONS (8)
  - BLOOD HOMOCYSTEINE ABNORMAL [None]
  - CONSTIPATION [None]
  - DEVELOPMENTAL COORDINATION DISORDER [None]
  - DEVELOPMENTAL DELAY [None]
  - FAILURE TO THRIVE [None]
  - HYPOTONIA [None]
  - URINE AMINO ACID LEVEL INCREASED [None]
  - VITAMIN B12 DEFICIENCY [None]
